FAERS Safety Report 9258352 (Version 2)
Quarter: 2014Q1

REPORT INFORMATION
  Report Type: Spontaneous
  Country: US (occurrence: None)
  Receive Date: 20121212
  Receipt Date: 20130314
  Transmission Date: 20141002
  Serious: No
  Sender: FDA-Public Use
  Company Number: 1210USA010700

PATIENT
  Age: 55 Year
  Sex: Male

DRUGS (4)
  1. RIBAVIRIN (RIBAVIRIN) [Suspect]
     Indication: HEPATITIS C
     Route: 048
     Dates: start: 20120720, end: 20130102
  2. VICTRELIS (BOCEPREVIR) CAPSULE [Suspect]
     Indication: HEPATITIS C
     Route: 048
     Dates: start: 20120824, end: 20130102
  3. TELAPREVIR (TELAPREVIR) [Concomitant]
     Indication: HEPATITIS C
     Dates: start: 20120720, end: 20120821
  4. PEGASYS (PEGINTERFERON ALFA -2A) [Suspect]
     Indication: HEPATITIS C
     Dates: start: 20120720, end: 20130102

REACTIONS (4)
  - Rash [None]
  - Red blood cell count decreased [None]
  - Dysgeusia [None]
  - Haemoglobin decreased [None]
